FAERS Safety Report 25788101 (Version 2)
Quarter: 2025Q4

REPORT INFORMATION
  Report Type: Spontaneous
  Country: JP (occurrence: JP)
  Receive Date: 20250910
  Receipt Date: 20251230
  Transmission Date: 20260117
  Serious: Yes (Other)
  Sender: EISAI
  Company Number: JP-Eisai-202507088_LEN_P_1

PATIENT
  Sex: Male

DRUGS (1)
  1. LENVATINIB [Suspect]
     Active Substance: LENVATINIB
     Indication: Thyroid cancer
     Dosage: ON A 5-DAY-ON AND 2-DAY-OFF SCHEDULE(WEEKENDS-OFF REGIMEN)
     Route: 048

REACTIONS (1)
  - Pulmonary toxicity [Recovering/Resolving]
